FAERS Safety Report 6361192-0 (Version None)
Quarter: 2009Q3

REPORT INFORMATION
  Report Type: 
  Country: None (occurrence: None)
  Receive Date: 20090915
  Receipt Date: 20090915
  Transmission Date: 20100115
  Serious: No
  Sender: FDA-Public Use
  Company Number: None

PATIENT
  Age: 44 Year
  Sex: Male
  Weight: 81.6475 kg

DRUGS (1)
  1. ZICAM SWABS MATRIXX [Suspect]
     Indication: ANOSMIA
     Dosage: ONE SWAP 2-3 TIMES PER DAY AS NEEDED NASAL

REACTIONS (5)
  - ANOSMIA [None]
  - ANXIETY [None]
  - EMOTIONAL DISTRESS [None]
  - HYPOSMIA [None]
  - PRODUCT QUALITY ISSUE [None]
